FAERS Safety Report 5704886-X (Version None)
Quarter: 2008Q2

REPORT INFORMATION
  Report Type: 
  Country: None (occurrence: None)
  Receive Date: 20080414
  Receipt Date: 20080403
  Transmission Date: 20081010
  Serious: Yes (Hospitalization)
  Sender: FDA-Public Use
  Company Number: FR-BOEHRINGER INGELHEIM GMBH, GERMANY-2008-FF-00268FF

PATIENT
  Age: 52 Year
  Sex: Female

DRUGS (4)
  1. VIRAMUNE [Suspect]
     Indication: HIV TEST POSITIVE
     Route: 048
     Dates: start: 20030101, end: 20060301
  2. KALETRA [Concomitant]
     Indication: HIV TEST POSITIVE
     Route: 048
     Dates: start: 20060401, end: 20070501
  3. VIDEX [Concomitant]
     Indication: HIV TEST POSITIVE
     Route: 048
     Dates: start: 20030101, end: 20070601
  4. EPIVIR [Concomitant]
     Indication: HIV TEST POSITIVE
     Route: 048
     Dates: start: 20030101, end: 20070601

REACTIONS (4)
  - ASCITES [None]
  - EFFUSION [None]
  - FIBROSIS [None]
  - PORTAL HYPERTENSION [None]
